FAERS Safety Report 9830714 (Version 1)
Quarter: 2014Q1

REPORT INFORMATION
  Report Type: Spontaneous
  Country: DE (occurrence: DE)
  Receive Date: 20140120
  Receipt Date: 20140120
  Transmission Date: 20141002
  Serious: Yes (Hospitalization, Other)
  Sender: FDA-Public Use
  Company Number: DE-BAYER-2014-008853

PATIENT
  Sex: Male

DRUGS (2)
  1. XARELTO [Suspect]
     Dosage: 15 MG, QD
  2. ASPIRIN PROTECT [Suspect]
     Dosage: 100 MG, UNK

REACTIONS (3)
  - Acute coronary syndrome [None]
  - Pain in extremity [None]
  - Rash macular [None]
